FAERS Safety Report 6386850-3 (Version None)
Quarter: 2009Q4

REPORT INFORMATION
  Report Type: 
  Country: None (occurrence: None)
  Receive Date: 20091002
  Receipt Date: 20090922
  Transmission Date: 20100525
  Serious: Yes (Hospitalization, Other)
  Sender: FDA-Public Use
  Company Number: US-NOVOPROD-291959

PATIENT
  Age: 60 Year
  Sex: Male
  Weight: 58.503 kg

DRUGS (2)
  1. NOVOLIN R [Suspect]
     Indication: TYPE 2 DIABETES MELLITUS
     Dosage: SLIDING SCALE
     Route: 058
     Dates: start: 20080301, end: 20090801
  2. NOVOLIN N [Suspect]
     Indication: TYPE 2 DIABETES MELLITUS
     Dosage: SLIDING SCALE
     Route: 058
     Dates: start: 20080301, end: 20090801

REACTIONS (11)
  - BLOOD GLUCOSE INCREASED [None]
  - BLOOD URINE PRESENT [None]
  - CARDIAC VALVE DISEASE [None]
  - DYSPNOEA [None]
  - ENDOCARDITIS BACTERIAL [None]
  - HEPATIC FAILURE [None]
  - INJECTION SITE REACTION [None]
  - OESOPHAGEAL HAEMORRHAGE [None]
  - RENAL FAILURE [None]
  - STAPHYLOCOCCAL INFECTION [None]
  - WEIGHT DECREASED [None]
